FAERS Safety Report 16446983 (Version 2)
Quarter: 2019Q2

REPORT INFORMATION
  Report Type: Spontaneous
  Country: OM (occurrence: OM)
  Receive Date: 20190618
  Receipt Date: 20190619
  Transmission Date: 20190711
  Serious: Yes (Hospitalization, Other)
  Sender: FDA-Public Use
  Company Number: OM-B.I. PHARMACEUTICALS,INC./RIDGEFIELD-2019-BI-026239

PATIENT
  Age: 86 Year
  Sex: Female

DRUGS (1)
  1. PRADAXA [Suspect]
     Active Substance: DABIGATRAN ETEXILATE MESYLATE
     Indication: ATRIAL FIBRILLATION
     Route: 065

REACTIONS (10)
  - Haemorrhagic cerebral infarction [Unknown]
  - Bradycardia [Unknown]
  - Agitation [Unknown]
  - Somnolence [Unknown]
  - Hemiplegia [Unknown]
  - Pain [Unknown]
  - Dysarthria [Unknown]
  - Vertigo [Unknown]
  - Vomiting [Unknown]
  - Headache [Unknown]
